FAERS Safety Report 9241091 (Version 2)
Quarter: 2013Q2

REPORT INFORMATION
  Report Type: Spontaneous
  Country: CA (occurrence: CA)
  Receive Date: 20130419
  Receipt Date: 20130531
  Transmission Date: 20140414
  Serious: Yes (Hospitalization, Other)
  Sender: FDA-Public Use
  Company Number: CA-AMGEN-CANSP2013026408

PATIENT
  Age: 67 Year
  Sex: Female
  Weight: 71.8 kg

DRUGS (3)
  1. PROLIA [Suspect]
     Indication: OSTEOPOROSIS POSTMENOPAUSAL
     Dosage: 60 MG, Q6MO
     Route: 058
     Dates: start: 20121005
  2. CALCIUM [Concomitant]
     Indication: OSTEOPOROSIS
     Dosage: 650 MG, QD
     Route: 048
     Dates: start: 20120827
  3. VITAMIN D                          /00107901/ [Concomitant]
     Indication: OSTEOPOROSIS
     Dosage: 1000 IU, QD
     Route: 048
     Dates: start: 20120827

REACTIONS (3)
  - Hip fracture [Recovering/Resolving]
  - Femur fracture [Unknown]
  - Fall [Unknown]
